FAERS Safety Report 6136438-4 (Version None)
Quarter: 2009Q1

REPORT INFORMATION
  Report Type: 
  Country: None (occurrence: None)
  Receive Date: 20090330
  Receipt Date: 20090109
  Transmission Date: 20090719
  Serious: No
  Sender: FDA-Public Use
  Company Number: US-BAUSCH-2009BL000092

PATIENT
  Age: 4 Year
  Sex: Male

DRUGS (4)
  1. OFLOXACIN OTIC SOLUTION 0.3% [Suspect]
     Indication: EAR TUBE INSERTION
     Route: 001
     Dates: start: 20081231
  2. OFLOXACIN OTIC SOLUTION 0.3% [Suspect]
     Route: 001
     Dates: start: 20081231
  3. AMOXICILLIN [Concomitant]
  4. TYLENOL ^JOHNSON + JOHNSON^ [Concomitant]

REACTIONS (1)
  - EAR DISCOMFORT [None]
